FAERS Safety Report 11725547 (Version 2)
Quarter: 2016Q1

REPORT INFORMATION
  Report Type: Spontaneous
  Country: US (occurrence: US)
  Receive Date: 20151111
  Receipt Date: 20160203
  Transmission Date: 20160525
  Serious: No
  Sender: FDA-Public Use
  Company Number: US-UCBSA-2015026440

PATIENT
  Age: 29 Year
  Sex: Male

DRUGS (4)
  1. LEVETIRACETAM. [Concomitant]
     Active Substance: LEVETIRACETAM
     Dosage: 500 MG 10 A DAY
  2. VIMPAT [Suspect]
     Active Substance: LACOSAMIDE
     Indication: SEIZURE
     Dosage: 200 MG, 4X/DAY (QID)
  3. LEVETIRACETAM. [Concomitant]
     Active Substance: LEVETIRACETAM
     Indication: PRODUCT USED FOR UNKNOWN INDICATION
     Dosage: UNK
  4. KEPPRA [Suspect]
     Active Substance: LEVETIRACETAM
     Indication: SEIZURE
     Dosage: 250 MG/10 A DAY

REACTIONS (4)
  - Incorrect dose administered [Unknown]
  - Off label use [Unknown]
  - Drug ineffective [Unknown]
  - Overdose [Unknown]

NARRATIVE: CASE EVENT DATE: 20150416
